FAERS Safety Report 14858004 (Version 1)
Quarter: 2018Q2

REPORT INFORMATION
  Report Type: Spontaneous
  Country: US (occurrence: US)
  Receive Date: 20180508
  Receipt Date: 20180508
  Transmission Date: 20180711
  Serious: No
  Sender: FDA-Public Use
  Company Number: US-SHIRE-US201817279

PATIENT
  Age: 71 Year
  Sex: Male
  Weight: 80.27 kg

DRUGS (2)
  1. XIIDRA [Suspect]
     Active Substance: LIFITEGRAST
     Indication: DRY EYE
     Dosage: 1 GTT, 2X/DAY:BID
     Route: 047
     Dates: start: 201804
  2. ALREX [Concomitant]
     Active Substance: LOTEPREDNOL ETABONATE
     Indication: ERYTHEMA

REACTIONS (7)
  - Product storage error [Not Recovered/Not Resolved]
  - Product quality issue [Unknown]
  - Viral infection [Not Recovered/Not Resolved]
  - Instillation site pain [Not Recovered/Not Resolved]
  - Instillation site reaction [Not Recovered/Not Resolved]
  - Instillation site erythema [Not Recovered/Not Resolved]
  - Vision blurred [Not Recovered/Not Resolved]

NARRATIVE: CASE EVENT DATE: 201804
